FAERS Safety Report 6072408-2 (Version None)
Quarter: 2009Q1

REPORT INFORMATION
  Report Type: 
  Country: None (occurrence: None)
  Receive Date: 20090209
  Receipt Date: 20090209
  Transmission Date: 20090719
  Serious: Yes (Life-Threatening, Disabling, Other)
  Sender: FDA-Public Use
  Company Number: None

PATIENT
  Age: 98 Year
  Sex: Female
  Weight: 110 kg

DRUGS (9)
  1. LORAZEPAM [Suspect]
     Indication: ANXIETY
     Dosage: TAKE FOUR TABLETS BY MOUTH EVERY 2 HOURS PO TAKE ONE TO FOUR TABLETS EVERY 2 HOURS PO
     Route: 048
     Dates: start: 20090131
  2. LORAZEPAM [Suspect]
     Indication: DYSPNOEA
     Dosage: TAKE FOUR TABLETS BY MOUTH EVERY 2 HOURS PO TAKE ONE TO FOUR TABLETS EVERY 2 HOURS PO
     Route: 048
     Dates: start: 20090131
  3. LORAZEPAM [Suspect]
     Indication: INSOMNIA
     Dosage: TAKE FOUR TABLETS BY MOUTH EVERY 2 HOURS PO TAKE ONE TO FOUR TABLETS EVERY 2 HOURS PO
     Route: 048
     Dates: start: 20090131
  4. LORAZEPAM [Suspect]
     Indication: NAUSEA
     Dosage: TAKE FOUR TABLETS BY MOUTH EVERY 2 HOURS PO TAKE ONE TO FOUR TABLETS EVERY 2 HOURS PO
     Route: 048
     Dates: start: 20090131
  5. LORAZEPAM [Suspect]
     Indication: ANXIETY
     Dosage: TAKE FOUR TABLETS BY MOUTH EVERY 2 HOURS PO TAKE ONE TO FOUR TABLETS EVERY 2 HOURS PO
     Route: 048
     Dates: start: 20090201
  6. LORAZEPAM [Suspect]
     Indication: DYSPNOEA
     Dosage: TAKE FOUR TABLETS BY MOUTH EVERY 2 HOURS PO TAKE ONE TO FOUR TABLETS EVERY 2 HOURS PO
     Route: 048
     Dates: start: 20090201
  7. LORAZEPAM [Suspect]
     Indication: INSOMNIA
     Dosage: TAKE FOUR TABLETS BY MOUTH EVERY 2 HOURS PO TAKE ONE TO FOUR TABLETS EVERY 2 HOURS PO
     Route: 048
     Dates: start: 20090201
  8. LORAZEPAM [Suspect]
     Indication: NAUSEA
     Dosage: TAKE FOUR TABLETS BY MOUTH EVERY 2 HOURS PO TAKE ONE TO FOUR TABLETS EVERY 2 HOURS PO
     Route: 048
     Dates: start: 20090201
  9. LORAZEPAM [Suspect]

REACTIONS (5)
  - ACTIVITIES OF DAILY LIVING IMPAIRED [None]
  - CONTUSION [None]
  - DRUG DISPENSING ERROR [None]
  - DRUG PRESCRIBING ERROR [None]
  - FALL [None]
